FAERS Safety Report 6853485-5 (Version None)
Quarter: 2010Q3

REPORT INFORMATION
  Report Type: 
  Country: None (occurrence: None)
  Receive Date: 20100717
  Receipt Date: 20080129
  Transmission Date: 20110219
  Serious: No
  Sender: FDA-Public Use
  Company Number: US-PFIZER INC-2007100758

PATIENT
  Sex: Male
  Weight: 88 kg

DRUGS (8)
  1. CHANTIX [Suspect]
     Dates: start: 20071101
  2. METHADOSE [Suspect]
     Indication: PAIN
  3. LEVITRA [Concomitant]
     Indication: ERECTILE DYSFUNCTION
     Route: 048
  4. RANITIDINE [Concomitant]
     Route: 048
  5. IPRATROPIUM BROMIDE [Concomitant]
     Route: 055
  6. LISINOPRIL [Concomitant]
  7. LINSEED OIL [Concomitant]
     Route: 048
  8. FISH OIL [Concomitant]

REACTIONS (16)
  - ANXIETY [None]
  - CHEST PAIN [None]
  - DEPRESSION [None]
  - DIPLOPIA [None]
  - DIZZINESS [None]
  - DYSPEPSIA [None]
  - INFLUENZA [None]
  - JOINT SWELLING [None]
  - MUSCLE SPASMS [None]
  - MYALGIA [None]
  - NAUSEA [None]
  - NOCTURIA [None]
  - OEDEMA PERIPHERAL [None]
  - PAIN IN EXTREMITY [None]
  - SLEEP DISORDER [None]
  - WITHDRAWAL SYNDROME [None]
